FAERS Safety Report 9526860 (Version 5)
Quarter: 2014Q1

REPORT INFORMATION
  Report Type: Report from Study
  Country: BR (occurrence: BR)
  Receive Date: 20130916
  Receipt Date: 20140106
  Transmission Date: 20141002
  Serious: Yes (Other)
  Sender: FDA-Public Use
  Company Number: PHHY2013BR100460

PATIENT
  Sex: Female

DRUGS (4)
  1. ACLASTA [Suspect]
     Indication: OSTEOPOROSIS
     Dosage: 5 MG, ONE APPLICATION YEARLY
     Route: 042
     Dates: start: 2012
  2. ACLASTA [Suspect]
     Indication: PAIN
  3. ACLASTA [Suspect]
     Indication: OFF LABEL USE
  4. RIVOTRIL [Concomitant]
     Indication: ABDOMINAL DISCOMFORT
     Dosage: UNK

REACTIONS (19)
  - Pigmentation disorder [Recovering/Resolving]
  - Skin injury [Recovering/Resolving]
  - Purulent discharge [Recovering/Resolving]
  - Bloody discharge [Recovering/Resolving]
  - Wound complication [Recovering/Resolving]
  - Gait disturbance [Not Recovered/Not Resolved]
  - Visual acuity reduced [Not Recovered/Not Resolved]
  - Syncope [Unknown]
  - Blood pressure increased [Not Recovered/Not Resolved]
  - Feeling abnormal [Unknown]
  - Head discomfort [Unknown]
  - Memory impairment [Not Recovered/Not Resolved]
  - Lung disorder [Not Recovered/Not Resolved]
  - Pain [Not Recovered/Not Resolved]
  - Groin pain [Not Recovered/Not Resolved]
  - Pain in extremity [Not Recovered/Not Resolved]
  - Asthenia [Not Recovered/Not Resolved]
  - Dizziness [Unknown]
  - Drug ineffective [Not Recovered/Not Resolved]
